FAERS Safety Report 19866514 (Version 1)
Quarter: 2021Q3

REPORT INFORMATION
  Report Type: Report from Study
  Country: GB (occurrence: GB)
  Receive Date: 20210921
  Receipt Date: 20210921
  Transmission Date: 20211014
  Serious: Yes (Hospitalization)
  Sender: FDA-Public Use
  Company Number: GB-PFIZER INC-202101168247

PATIENT
  Age: 63 Year
  Sex: Female
  Weight: 66.5 kg

DRUGS (24)
  1. FLUDROCORTISONE [Concomitant]
     Active Substance: FLUDROCORTISONE
  2. ACICLOVIR [Concomitant]
     Active Substance: ACYCLOVIR
  3. DOCUSATE SODIUM. [Concomitant]
     Active Substance: DOCUSATE SODIUM
  4. LAXIDO [Concomitant]
     Active Substance: POLYETHYLENE GLYCOL 3350\POTASSIUM CHLORIDE\SODIUM BICARBONATE\SODIUM CHLORIDE
  5. ATEZOLIZUMAB. [Suspect]
     Active Substance: ATEZOLIZUMAB
     Indication: NON-SMALL CELL LUNG CANCER
     Dosage: 1200 MG, EVERY 4 WEEKS
     Route: 041
     Dates: start: 20210316
  6. APIXABAN [Concomitant]
     Active Substance: APIXABAN
  7. GLICLAZIDE [Concomitant]
     Active Substance: GLICLAZIDE
  8. CLOTRIMAZOLE. [Concomitant]
     Active Substance: CLOTRIMAZOLE
  9. ATEZOLIZUMAB. [Suspect]
     Active Substance: ATEZOLIZUMAB
     Dosage: 1680 MG, EVERY 4 WEEKS
     Route: 041
     Dates: start: 20210720
  10. FILGRASTIM [Concomitant]
     Active Substance: FILGRASTIM
  11. E45 [Concomitant]
     Active Substance: LANOLIN\LIGHT MINERAL OIL\PARAFFIN
  12. CARBOPLATIN. [Suspect]
     Active Substance: CARBOPLATIN
     Indication: NON-SMALL CELL LUNG CANCER
     Dosage: 450 MG
     Route: 065
     Dates: start: 20210316
  13. METFORMIN [Concomitant]
     Active Substance: METFORMIN HYDROCHLORIDE
  14. SALBUTAMOL [Concomitant]
     Active Substance: ALBUTEROL
  15. PREDNISOLONE. [Concomitant]
     Active Substance: PREDNISOLONE
  16. DIGOXIN. [Concomitant]
     Active Substance: DIGOXIN
  17. AMOXICILLIN. [Concomitant]
     Active Substance: AMOXICILLIN
  18. FLUCONAZOLE. [Concomitant]
     Active Substance: FLUCONAZOLE
  19. ETOPOSIDE. [Suspect]
     Active Substance: ETOPOSIDE
     Indication: NON-SMALL CELL LUNG CANCER
     Dosage: 180 MG
     Route: 065
     Dates: start: 20210316
  20. ETOPOSIDE. [Suspect]
     Active Substance: ETOPOSIDE
     Dosage: 700 MG
     Route: 048
     Dates: start: 20210407
  21. BISOPROLOL [Concomitant]
     Active Substance: BISOPROLOL
  22. PARACETAMOL [Concomitant]
     Active Substance: ACETAMINOPHEN
  23. AQUEOUS CREAM [Concomitant]
  24. OMEPRAZOLE. [Concomitant]
     Active Substance: OMEPRAZOLE

REACTIONS (1)
  - Immune-mediated enterocolitis [Recovered/Resolved]

NARRATIVE: CASE EVENT DATE: 20210818
